FAERS Safety Report 19868038 (Version 6)
Quarter: 2023Q4

REPORT INFORMATION
  Report Type: Spontaneous
  Country: US (occurrence: US)
  Receive Date: 20210922
  Receipt Date: 20231115
  Transmission Date: 20240110
  Serious: Yes (Hospitalization, Other)
  Sender: FDA-Public Use
  Company Number: US-PFIZER INC-202101203029

PATIENT
  Age: 55 Year
  Sex: Female

DRUGS (3)
  1. XELJANZ [Suspect]
     Active Substance: TOFACITINIB CITRATE
     Indication: Rheumatoid arthritis
     Dosage: 5 MG
     Route: 048
  2. XELJANZ [Suspect]
     Active Substance: TOFACITINIB CITRATE
     Indication: Fibromyalgia
     Dosage: 5 MG, 1X/DAY
     Route: 048
     Dates: end: 20210903
  3. XELJANZ [Suspect]
     Active Substance: TOFACITINIB CITRATE
     Dosage: 5 MG, 1X/DAY
     Route: 048

REACTIONS (10)
  - Pneumonia [Unknown]
  - COVID-19 [Unknown]
  - Contusion [Unknown]
  - Weight increased [Unknown]
  - Limb discomfort [Unknown]
  - Musculoskeletal disorder [Unknown]
  - Hypoacusis [Unknown]
  - Sleep disorder [Unknown]
  - Malaise [Unknown]
  - Off label use [Unknown]

NARRATIVE: CASE EVENT DATE: 20231103
